FAERS Safety Report 5466023-9 (Version None)
Quarter: 2007Q3

REPORT INFORMATION
  Report Type: 
  Country: None (occurrence: None)
  Receive Date: 20070924
  Receipt Date: 20070914
  Transmission Date: 20080115
  Serious: No
  Sender: FDA-Public Use
  Company Number: US-BOEHRINGER INGELHEIM PHARMACEUTICALS, INC.-2007-BP-21159BP

PATIENT

DRUGS (1)
  1. ATROVENT HFA [Suspect]

REACTIONS (2)
  - ADVERSE DRUG REACTION [None]
  - DRUG INEFFECTIVE [None]
